FAERS Safety Report 14630816 (Version 1)
Quarter: 2018Q1

REPORT INFORMATION
  Report Type: Spontaneous
  Country: US (occurrence: US)
  Receive Date: 20180313
  Receipt Date: 20180313
  Transmission Date: 20180509
  Serious: Yes (Death, Hospitalization)
  Sender: FDA-Public Use
  Company Number: US-ROCHE-2088041

PATIENT
  Age: 59 Year
  Sex: Male

DRUGS (9)
  1. LIPITOR [Concomitant]
     Active Substance: ATORVASTATIN CALCIUM
     Dosage: ONGOING:NO
     Route: 065
  2. LISINOPRIL. [Concomitant]
     Active Substance: LISINOPRIL
     Dosage: ONGOING: NO
     Route: 065
  3. KLONOPIN [Suspect]
     Active Substance: CLONAZEPAM
     Dosage: AT 8 AM, NOON, 4 PM AND 8 PM ;ONGOING: NO
     Route: 065
  4. PHENOBARB [Concomitant]
     Active Substance: PHENOBARBITAL SODIUM
     Dosage: ONGOING: NO
     Route: 065
  5. FOLIC ACID. [Concomitant]
     Active Substance: FOLIC ACID
     Dosage: ONGOING: NO
     Route: 065
  6. ZOLOFT [Concomitant]
     Active Substance: SERTRALINE HYDROCHLORIDE
     Dosage: ONGOING: NO
     Route: 065
  7. CREON [Concomitant]
     Active Substance: PANCRELIPASE AMYLASE\PANCRELIPASE LIPASE\PANCRELIPASE PROTEASE
     Dosage: ONGOING: NO
     Route: 065
  8. KLONOPIN [Suspect]
     Active Substance: CLONAZEPAM
     Indication: ANXIETY
     Dosage: ONGOING- NO
     Route: 065
  9. SEROQUEL [Concomitant]
     Active Substance: QUETIAPINE FUMARATE
     Dosage: ONGOING: NO
     Route: 065

REACTIONS (3)
  - Agitation [Unknown]
  - Drug screen negative [Unknown]
  - Death [Fatal]

NARRATIVE: CASE EVENT DATE: 20171011
